FAERS Safety Report 6525658-2 (Version None)
Quarter: 2009Q4

REPORT INFORMATION
  Report Type: 
  Country: None (occurrence: None)
  Receive Date: 20091222
  Receipt Date: 20091211
  Transmission Date: 20100525
  Serious: Yes (Other)
  Sender: FDA-Public Use
  Company Number: 2009SP029508

PATIENT
  Age: 59 Year
  Sex: Female

DRUGS (16)
  1. ROCURONIUM BROMIDE [Suspect]
     Indication: NEUROMUSCULAR BLOCKING THERAPY
     Dosage: 135 MG;
  2. SUGAMMADEX SODIUM [Suspect]
     Indication: NEUROMUSCULAR BLOCKADE REVERSAL
     Dosage: 200 MG; ONCE;
  3. AMOXICILLIN [Concomitant]
  4. GENTAMICIN [Concomitant]
  5. CIPROFLOXACIN [Concomitant]
  6. FENTANYL-100 [Concomitant]
  7. PROPOFOL [Concomitant]
  8. MORPHINE [Concomitant]
  9. DROPERIDOL [Concomitant]
  10. ONDANSETRON [Concomitant]
  11. GLYCOPYRROLATE [Concomitant]
  12. NEOSTIGMINE [Concomitant]
  13. METARAMINOL BITARTRATE [Concomitant]
  14. NALOXONE [Concomitant]
  15. CALCIUM CHLORIDE [Concomitant]
  16. SEVOFLURANE [Concomitant]

REACTIONS (5)
  - APNOEA [None]
  - FOAMING AT MOUTH [None]
  - LOSS OF CONSCIOUSNESS [None]
  - RESPIRATORY ARREST [None]
  - RESPIRATORY DISORDER [None]
